FAERS Safety Report 14961392 (Version 1)
Quarter: 2018Q2

REPORT INFORMATION
  Report Type: Spontaneous
  Country: US (occurrence: US)
  Receive Date: 20180601
  Receipt Date: 20180601
  Transmission Date: 20180711
  Serious: Yes (Hospitalization, Other)
  Sender: FDA-Public Use
  Company Number: PHHY2018US009016

PATIENT
  Age: 77 Year
  Sex: Female

DRUGS (2)
  1. AMIODARONE [Interacting]
     Active Substance: AMIODARONE
     Indication: TACHYARRHYTHMIA
     Route: 065
  2. DIGOXIN. [Suspect]
     Active Substance: DIGOXIN
     Indication: ATRIAL FIBRILLATION
     Dosage: UNK (LOWER DOSE)
     Route: 065

REACTIONS (8)
  - Dizziness [Recovered/Resolved]
  - Atrioventricular dissociation [Recovered/Resolved]
  - Bradycardia [Recovered/Resolved]
  - Drug interaction [Unknown]
  - Sinus node dysfunction [Recovered/Resolved]
  - Asthenia [Recovered/Resolved]
  - Tachyarrhythmia [Recovered/Resolved]
  - Toxicity to various agents [Recovered/Resolved]
